FAERS Safety Report 6167199-0 (Version None)
Quarter: 2009Q2

REPORT INFORMATION
  Report Type: 
  Country: None (occurrence: None)
  Receive Date: 20090423
  Receipt Date: 20090408
  Transmission Date: 20091009
  Serious: Yes (Hospitalization)
  Sender: FDA-Public Use
  Company Number: 8044405

PATIENT
  Age: 31 Year
  Sex: Female

DRUGS (6)
  1. KEPPRA [Suspect]
     Indication: CONVULSION
     Dosage: 1000 MG, IV
     Route: 042
     Dates: start: 20090403
  2. ABILIFY [Concomitant]
  3. LAMIVUDINE [Concomitant]
  4. ABACAVIR [Concomitant]
  5. ETVABIRINE [Concomitant]
  6. RALTEGRAVIR [Concomitant]

REACTIONS (3)
  - AGITATION [None]
  - LOSS OF CONSCIOUSNESS [None]
  - MENTAL STATUS CHANGES [None]
